FAERS Safety Report 4271869-9 (Version None)
Quarter: 2004Q1

REPORT INFORMATION
  Report Type: 
  Country: None (occurrence: None)
  Receive Date: 20040115
  Receipt Date: 20031122
  Transmission Date: 20041129
  Serious: Yes (Hospitalization)
  Sender: FDA-Public Use
  Company Number: US-ROCHE-352486

PATIENT
  Age: 48 Year
  Sex: Male
  Weight: 68.5 kg

DRUGS (15)
  1. FUZEON [Suspect]
     Route: 058
     Dates: start: 20031118, end: 20031208
  2. FUZEON [Suspect]
     Route: 058
     Dates: start: 20030901, end: 20031115
  3. ANTIRETROVIRALS [Concomitant]
  4. BACTRIM [Concomitant]
     Route: 048
  5. LEUCOVORIN CALCIUM [Concomitant]
     Route: 048
  6. ELAVIL [Concomitant]
     Dosage: NIGHTLY
     Route: 048
  7. NEXIUM [Concomitant]
     Dosage: NIGHTLY
     Route: 048
  8. FAMVIR [Concomitant]
     Route: 048
  9. DIFLUCAN [Concomitant]
     Route: 048
  10. MEGACE [Concomitant]
     Route: 048
  11. ATIVAN [Concomitant]
     Dosage: PRN
     Route: 048
  12. VIREAD [Concomitant]
     Route: 048
     Dates: end: 20031115
  13. LAMIVUDINE [Concomitant]
     Route: 048
     Dates: end: 20031115
  14. NORVIR [Concomitant]
     Route: 048
     Dates: end: 20031115
  15. ATAZANAVIR [Concomitant]
     Route: 048
     Dates: end: 20031115

REACTIONS (29)
  - ABDOMINAL DISTENSION [None]
  - ACUTE SINUSITIS [None]
  - ADRENAL INSUFFICIENCY [None]
  - ASTHENIA [None]
  - BLOOD AMYLASE INCREASED [None]
  - BLOOD CREATININE INCREASED [None]
  - BLOOD POTASSIUM INCREASED [None]
  - BLOOD SODIUM DECREASED [None]
  - BLOOD TRIGLYCERIDES INCREASED [None]
  - BLOOD UREA INCREASED [None]
  - CELLULITIS [None]
  - CRYPTOCOCCOSIS [None]
  - DEEP VEIN THROMBOSIS [None]
  - DIABETES MELLITUS [None]
  - DRY MOUTH [None]
  - DYSPNOEA [None]
  - HAEMATOCRIT DECREASED [None]
  - HAEMOGLOBIN DECREASED [None]
  - HYPERLIPIDAEMIA [None]
  - INJECTION SITE ERYTHEMA [None]
  - INJECTION SITE INDURATION [None]
  - INJECTION SITE PAIN [None]
  - LACTIC ACIDOSIS [None]
  - OEDEMA PERIPHERAL [None]
  - PANCREATITIS [None]
  - PCO2 DECREASED [None]
  - PROTHROMBIN TIME PROLONGED [None]
  - RED BLOOD CELL COUNT DECREASED [None]
  - WEIGHT DECREASED [None]
